FAERS Safety Report 6095582-0 (Version None)
Quarter: 2009Q1

REPORT INFORMATION
  Report Type: 
  Country: None (occurrence: None)
  Receive Date: 20090227
  Receipt Date: 20080501
  Transmission Date: 20090719
  Serious: No
  Sender: FDA-Public Use
  Company Number: A0725836A

PATIENT
  Age: 41 Year
  Sex: Female

DRUGS (1)
  1. LAMICTAL [Suspect]
     Route: 048
     Dates: start: 20060101

REACTIONS (4)
  - ABNORMAL SENSATION IN EYE [None]
  - BLEPHAROSPASM [None]
  - EYE DISORDER [None]
  - EYE PAIN [None]
